FAERS Safety Report 6752025-9 (Version None)
Quarter: 2010Q2

REPORT INFORMATION
  Report Type: 
  Country: None (occurrence: None)
  Receive Date: 20100602
  Receipt Date: 20100525
  Transmission Date: 20101027
  Serious: Yes (Hospitalization)
  Sender: FDA-Public Use
  Company Number: US-MERCK-99090618

PATIENT
  Age: 67 Year
  Sex: Female

DRUGS (5)
  1. COZAAR [Suspect]
     Route: 048
  2. ALPRAZOLAM [Suspect]
     Route: 065
  3. CLONIDINE [Concomitant]
     Route: 065
  4. DILANTIN [Concomitant]
     Route: 065
  5. HYDRODIURIL [Concomitant]
     Route: 065

REACTIONS (5)
  - ARTHRALGIA [None]
  - CEREBROVASCULAR ACCIDENT [None]
  - MUSCULAR WEAKNESS [None]
  - NERVOUS SYSTEM DISORDER [None]
  - SPEECH DISORDER [None]
